FAERS Safety Report 5850782-7 (Version None)
Quarter: 2008Q3

REPORT INFORMATION
  Report Type: 
  Country: None (occurrence: None)
  Receive Date: 20080820
  Receipt Date: 20080808
  Transmission Date: 20090109
  Serious: Yes (Other)
  Sender: FDA-Public Use
  Company Number: CO-ELI_LILLY_AND_COMPANY-CO200808002086

PATIENT
  Age: 57 Year
  Sex: Male

DRUGS (1)
  1. GEMZAR [Suspect]
     Indication: AMPULLA OF VATER STENOSIS
     Dosage: 1000 MG/M2, UNKNOWN
     Route: 065

REACTIONS (1)
  - CEREBRAL INFARCTION [None]
